FAERS Safety Report 16481946 (Version 1)
Quarter: 2019Q2

REPORT INFORMATION
  Report Type: Spontaneous
  Country: DK (occurrence: DK)
  Receive Date: 20190627
  Receipt Date: 20190627
  Transmission Date: 20190711
  Serious: Yes (Hospitalization)
  Sender: FDA-Public Use
  Company Number: DK-ACCORD-135196

PATIENT
  Age: 88 Year
  Sex: Male

DRUGS (18)
  1. LOSARTAN. [Concomitant]
     Active Substance: LOSARTAN
     Indication: HYPERTENSION
     Dosage: STYRKE: 12,5MG
     Route: 048
     Dates: start: 20180627
  2. LACTULOSE. [Concomitant]
     Active Substance: LACTULOSE
     Indication: PRODUCT USED FOR UNKNOWN INDICATION
  3. ZOPICLON [Concomitant]
     Active Substance: ZOPICLONE
     Indication: INSOMNIA
     Dosage: STYRKE: 7,5MG
     Route: 048
     Dates: start: 20150128
  4. GLYCERYL TRINITRATE [Concomitant]
     Active Substance: NITROGLYCERIN
     Indication: ANGINA PECTORIS
     Dosage: STYRKE: 0,4MG/DOSIS
     Route: 060
     Dates: start: 20130415
  5. ISOSORBIDE. [Concomitant]
     Active Substance: ISOSORBIDE
     Indication: ANGINA PECTORIS
     Dosage: STYRKE: 30MG
     Route: 048
     Dates: start: 20150904
  6. PARACETAMOL [Concomitant]
     Active Substance: ACETAMINOPHEN
     Indication: PAIN
     Dosage: STYRKE: 500MG
     Route: 048
     Dates: start: 20140429, end: 20190521
  7. SPIRIX [Suspect]
     Active Substance: SPIRONOLACTONE
     Indication: POLYURIA
     Dosage: STYRKE: 25 MG
     Route: 048
     Dates: start: 20180628
  8. ALLOPURINOL. [Concomitant]
     Active Substance: ALLOPURINOL
     Indication: GOUT
     Dosage: STYRKE: 300 MG
     Route: 048
     Dates: start: 20140429
  9. XARELTO [Concomitant]
     Active Substance: RIVAROXABAN
     Indication: THROMBOSIS PROPHYLAXIS
     Dosage: STYRKE: 15MG
     Route: 048
     Dates: start: 20170614
  10. MACROGOL/MACROGOL STEARATE [Concomitant]
     Indication: CONSTIPATION
     Route: 048
     Dates: start: 20160304
  11. POTASSIUM [Concomitant]
     Active Substance: POTASSIUM
     Indication: MINERAL SUPPLEMENTATION
     Dosage: STYRKE: 750MG
     Route: 048
     Dates: start: 20180625, end: 20190521
  12. CLOPIDOGREL [Concomitant]
     Active Substance: CLOPIDOGREL BISULFATE
     Indication: THROMBOSIS PROPHYLAXIS
     Dosage: STYRKE: 75MG
     Route: 048
     Dates: start: 20170616
  13. CODEINE [Concomitant]
     Active Substance: CODEINE
     Indication: PAIN
     Dosage: STYRKE: 25MG
     Route: 048
     Dates: start: 20140429
  14. DUTASTERIDE. [Concomitant]
     Active Substance: DUTASTERIDE
     Indication: PROSTATOMEGALY
     Dosage: STYRKE: 0,5 MG
     Route: 048
     Dates: start: 20140429
  15. MIRABEGRON [Concomitant]
     Active Substance: MIRABEGRON
     Indication: HYPERTONIC BLADDER
     Dosage: STYRKE: 50MG
     Route: 048
     Dates: start: 20140429, end: 20190521
  16. FUROSEMIDE. [Suspect]
     Active Substance: FUROSEMIDE
     Indication: POLYURIA
     Dosage: STRENGTH: 40MG
     Route: 048
     Dates: start: 20171026
  17. ATORVASTATIN [Concomitant]
     Active Substance: ATORVASTATIN
     Indication: HYPERCHOLESTEROLAEMIA
     Dosage: STYRKE: 20MG
     Route: 048
     Dates: start: 20140429
  18. PANTOPRAZOLE [Concomitant]
     Active Substance: PANTOPRAZOLE
     Indication: GASTRITIS
     Dosage: STYRKE: 40MG
     Route: 048
     Dates: start: 20150702

REACTIONS (2)
  - Hypotension [Recovered/Resolved]
  - Dizziness [Recovered/Resolved]

NARRATIVE: CASE EVENT DATE: 20190510
